FAERS Safety Report 9819952 (Version 1)
Quarter: 2013Q4

REPORT INFORMATION
  Report Type: Spontaneous
  Country: US (occurrence: None)
  Receive Date: 20131223
  Receipt Date: 20131223
  Transmission Date: 20140711
  Serious: No
  Sender: FDA-Public Use
  Company Number: 218398

PATIENT
  Age: 60 Year
  Sex: Female

DRUGS (10)
  1. PICATO (0.05 %, GEL) [Suspect]
     Indication: SKIN CANCER
     Route: 061
     Dates: start: 20120704
  2. ALDARA (IMIQUIMOD) [Concomitant]
  3. CARAC (FLUOROURACIL) [Concomitant]
  4. RAPAMUNE (SIROLIMUS) [Concomitant]
  5. CELLCEPT (MYCOPHENOLATE MOFETIL) TABLET [Concomitant]
  6. ALTACE (RAMIPRIL) [Concomitant]
  7. LOPRESSOR (METOPROLOL TARTRATE) [Concomitant]
  8. LIPITOR (ATORVASTATIN CALCIUM) [Concomitant]
  9. ASPIRIN (ACETYLSALICYLIC ACID) [Concomitant]
  10. COZAAR (LOSARTAN POTASSIUM) [Concomitant]

REACTIONS (5)
  - Pyrexia [None]
  - Urinary tract infection [None]
  - Off label use [None]
  - Incorrect product storage [None]
  - Drug administered at inappropriate site [None]
